FAERS Safety Report 15406725 (Version 1)
Quarter: 2018Q3

REPORT INFORMATION
  Report Type: Spontaneous
  Country: US (occurrence: US)
  Receive Date: 20180920
  Receipt Date: 20180920
  Transmission Date: 20181010
  Serious: No
  Sender: FDA-Public Use
  Company Number: US-TEVA-2018-US-954753

PATIENT
  Sex: Male

DRUGS (1)
  1. WARFARTAB [Suspect]
     Active Substance: WARFARIN SODIUM
     Indication: CEREBROVASCULAR ACCIDENT
     Route: 065
     Dates: start: 2017

REACTIONS (1)
  - Cystitis [Unknown]

NARRATIVE: CASE EVENT DATE: 2017
